FAERS Safety Report 12195404 (Version 1)
Quarter: 2016Q1

REPORT INFORMATION
  Report Type: Report from Study
  Country: AR (occurrence: AR)
  Receive Date: 20160321
  Receipt Date: 20160321
  Transmission Date: 20160526
  Serious: Yes (Other)
  Sender: FDA-Public Use
  Company Number: PHHY2016AR036457

PATIENT
  Sex: Female

DRUGS (2)
  1. RASILEZ [Suspect]
     Active Substance: ALISKIREN
     Indication: HYPERTENSION
     Dosage: 1 DF, QD
     Route: 065
  2. EXFORGE [Suspect]
     Active Substance: AMLODIPINE BESYLATE\VALSARTAN
     Indication: HYPERTENSION
     Dosage: 1 DF (AMLODIPINE 10/VALSARTAN 160), QD
     Route: 065

REACTIONS (2)
  - Uterine cancer [Recovering/Resolving]
  - Vaginal disorder [Recovering/Resolving]
